FAERS Safety Report 5806978-3 (Version None)
Quarter: 2008Q3

REPORT INFORMATION
  Report Type: 
  Country: None (occurrence: None)
  Receive Date: 20080711
  Receipt Date: 20080702
  Transmission Date: 20090109
  Serious: Yes (Other)
  Sender: FDA-Public Use
  Company Number: US-BAYER-200827364NA

PATIENT
  Sex: Female

DRUGS (4)
  1. CLIMARA [Suspect]
     Indication: DRUG USE FOR UNKNOWN INDICATION
     Route: 062
     Dates: start: 19910101, end: 20020201
  2. PREMARIN [Suspect]
     Dates: start: 19910101, end: 20020201
  3. PROVERA [Suspect]
     Dates: start: 19910101, end: 20020201
  4. ESTRADERM [Suspect]
     Route: 062
     Dates: start: 19910101, end: 20020201

REACTIONS (1)
  - BREAST CANCER [None]
